FAERS Safety Report 5008989-7 (Version None)
Quarter: 2006Q2

REPORT INFORMATION
  Report Type: 
  Country: None (occurrence: None)
  Receive Date: 20060519
  Receipt Date: 20060505
  Transmission Date: 20061013
  Serious: Yes (Other)
  Sender: FDA-Public Use
  Company Number: 2006BL002473

PATIENT
  Sex: Female

DRUGS (1)
  1. FLUORESCEIN SODIUM AND BENOXINATE HYDROCHLORIDE OPHTHALMIC SOLUTION US [Suspect]
     Indication: OPHTHALMOLOGICAL EXAMINATION
     Dosage: 1 TIME; OPHTHALMIC
     Route: 047
     Dates: start: 20060209, end: 20060209

REACTIONS (3)
  - DRUG HYPERSENSITIVITY [None]
  - FACIAL PALSY [None]
  - HEADACHE [None]
